FAERS Safety Report 9266064 (Version 2)
Quarter: 2013Q2

REPORT INFORMATION
  Report Type: Spontaneous
  Country: US (occurrence: US)
  Receive Date: 20130501
  Receipt Date: 20130510
  Transmission Date: 20140414
  Serious: Yes (Life-Threatening, Hospitalization)
  Sender: FDA-Public Use
  Company Number: US-009507513-1304USA016534

PATIENT
  Age: 51 Year
  Sex: Female

DRUGS (2)
  1. PRINIVIL [Suspect]
     Indication: HYPERTENSION
     Route: 048
  2. PRINIVIL [Suspect]
     Indication: PROTEINURIA

REACTIONS (1)
  - Lip swelling [Recovered/Resolved]
